FAERS Safety Report 8795283 (Version 4)
Quarter: 2013Q3

REPORT INFORMATION
  Report Type: Report from Study
  Country: JP (occurrence: JP)
  Receive Date: 20120917
  Receipt Date: 20130910
  Transmission Date: 20140515
  Serious: Yes (Hospitalization)
  Sender: FDA-Public Use
  Company Number: JP-VERTEX PHARMACEUTICAL INC.-AE-2012-009284

PATIENT
  Age: 67 Year
  Sex: Female

DRUGS (17)
  1. VX-950 (TELAPREVIR) [Suspect]
     Indication: CHRONIC HEPATITIS C
     Dosage: 2250 MG, QD
     Route: 048
     Dates: start: 20120301, end: 20120321
  2. VX-950 (TELAPREVIR) [Suspect]
     Dosage: 1500 MG, QD
     Route: 048
     Dates: start: 20120322, end: 20120411
  3. VX-950 (TELAPREVIR) [Suspect]
     Dosage: 750 MG, QD
     Route: 048
     Dates: start: 20120412, end: 20120510
  4. RIBAVIRIN [Suspect]
     Indication: CHRONIC HEPATITIS C
     Dosage: 600 MG, QD
     Route: 048
     Dates: start: 20120301, end: 20120314
  5. RIBAVIRIN [Suspect]
     Dosage: 400 MG, QD
     Route: 048
     Dates: start: 20120315, end: 20120321
  6. RIBAVIRIN [Suspect]
     Dosage: 200 MG, QD
     Route: 048
     Dates: start: 20120322, end: 20120328
  7. RIBAVIRIN [Suspect]
     Dosage: 200 MG/2 DAYS
     Route: 048
     Dates: start: 20120329
  8. PEGINTERFERON ALFA-2B [Suspect]
     Indication: CHRONIC HEPATITIS C
     Dosage: 1.5 ?G/KG, QW
     Route: 058
     Dates: start: 20120301
  9. EURODIN [Concomitant]
     Dosage: 2 MG, QD
     Route: 048
     Dates: end: 20120522
  10. FEBURIC [Concomitant]
     Dosage: 40 MG, QD
     Route: 048
     Dates: start: 20120301
  11. EPADEL [Concomitant]
     Dosage: 1800 MG, QD
     Route: 048
     Dates: start: 20120301
  12. LOXONIN [Concomitant]
     Dosage: 60 MG, PRN
     Route: 048
     Dates: start: 20120302, end: 20120328
  13. NAUZELIN [Concomitant]
     Dosage: 30 MG, QD
     Route: 048
     Dates: start: 20120306
  14. KARY UNI [Concomitant]
     Dosage: 5 ML, QD
     Route: 047
     Dates: start: 20120322, end: 20120322
  15. MUCOSTA [Concomitant]
     Dosage: 300 MG, QD
     Route: 048
     Dates: start: 20120506, end: 20120520
  16. ACINON [Concomitant]
     Dosage: 150 MG, QD
     Route: 048
     Dates: start: 20120510
  17. DOGMATYL [Concomitant]
     Dosage: 100 MG, QD
     Route: 048
     Dates: start: 20120312

REACTIONS (1)
  - Erythema multiforme [Recovered/Resolved]
